FAERS Safety Report 15369041 (Version 1)
Quarter: 2018Q3

REPORT INFORMATION
  Report Type: Report from Study
  Country: CA (occurrence: CA)
  Receive Date: 20180911
  Receipt Date: 20180911
  Transmission Date: 20181010
  Serious: Yes (Other)
  Sender: FDA-Public Use
  Company Number: CA-BRISTOL-MYERS SQUIBB COMPANY-BMS-2018-081055

PATIENT
  Sex: Female

DRUGS (2)
  1. ABATACEPT [Suspect]
     Active Substance: ABATACEPT
     Indication: PRODUCT USED FOR UNKNOWN INDICATION
     Dosage: UNK
     Route: 065
     Dates: start: 20180827
  2. ABATACEPT [Suspect]
     Active Substance: ABATACEPT
     Indication: PRODUCT USED FOR UNKNOWN INDICATION
     Dosage: 125 MG, QWK
     Route: 058
     Dates: start: 20160418

REACTIONS (6)
  - Scleroderma [Recovered/Resolved]
  - Diarrhoea [Recovered/Resolved]
  - Oropharyngitis fungal [Recovered/Resolved]
  - Photosensitivity reaction [Recovered/Resolved]
  - Oral fungal infection [Recovered/Resolved]
  - Abdominal pain [Recovered/Resolved]
